FAERS Safety Report 14704751 (Version 1)
Quarter: 2018Q2

REPORT INFORMATION
  Report Type: Spontaneous
  Country: US (occurrence: US)
  Receive Date: 20180402
  Receipt Date: 20180402
  Transmission Date: 20180711
  Serious: Yes (Other)
  Sender: FDA-Public Use
  Company Number: US-BAYER-2018-060059

PATIENT

DRUGS (1)
  1. AVELOX [Suspect]
     Active Substance: MOXIFLOXACIN HYDROCHLORIDE
     Dosage: UNK
     Dates: start: 200812

REACTIONS (4)
  - Pain [None]
  - Neuropathy peripheral [Not Recovered/Not Resolved]
  - Injury [Not Recovered/Not Resolved]
  - Emotional disorder [None]
